FAERS Safety Report 17127307 (Version 4)
Quarter: 2020Q1

REPORT INFORMATION
  Report Type: Report from Study
  Country: US (occurrence: US)
  Receive Date: 20191209
  Receipt Date: 20200122
  Transmission Date: 20200409
  Serious: Yes (Hospitalization, Other)
  Sender: FDA-Public Use
  Company Number: NVSC2019US060916

PATIENT
  Sex: Female

DRUGS (2)
  1. PIQRAY [Suspect]
     Active Substance: ALPELISIB
     Indication: PRODUCT USED FOR UNKNOWN INDICATION
     Route: 048
  2. PIQRAY [Suspect]
     Active Substance: ALPELISIB
     Route: 048

REACTIONS (7)
  - Condition aggravated [Unknown]
  - Neoplasm malignant [Unknown]
  - Blood glucose increased [Unknown]
  - Diarrhoea [Unknown]
  - Drug ineffective [Unknown]
  - Blood potassium increased [Unknown]
  - Pruritus [Unknown]
